FAERS Safety Report 13738585 (Version 1)
Quarter: 2017Q3

REPORT INFORMATION
  Report Type: Spontaneous
  Country: US (occurrence: US)
  Receive Date: 20170710
  Receipt Date: 20170710
  Transmission Date: 20171127
  Serious: No
  Sender: FDA-Public Use
  Company Number: US-SAOL THERAPEUTICS-2017SAO00195

PATIENT
  Age: 62 Year
  Sex: Female

DRUGS (6)
  1. DILAUDID [Suspect]
     Active Substance: HYDROMORPHONE HYDROCHLORIDE
     Dosage: 6.994 MG, \DAY
     Route: 037
     Dates: start: 20161207
  2. DILAUDID [Suspect]
     Active Substance: HYDROMORPHONE HYDROCHLORIDE
     Dosage: 7.640 MG, \DAY
     Route: 037
     Dates: start: 20161207
  3. BACLOFEN. [Suspect]
     Active Substance: BACLOFEN
     Dosage: 299.19 ?G, \DAY
     Dates: start: 20161207
  4. BACLOFEN. [Suspect]
     Active Substance: BACLOFEN
     Dosage: 209.82 ?G, \DAY
     Route: 037
     Dates: start: 20161207
  5. DILAUDID [Suspect]
     Active Substance: HYDROMORPHONE HYDROCHLORIDE
     Dosage: 3.497 MG, \DAY
     Route: 037
     Dates: start: 20170120
  6. DILAUDID [Suspect]
     Active Substance: HYDROMORPHONE HYDROCHLORIDE
     Dosage: 3.819 MG, \DAY
     Route: 037
     Dates: start: 20170120

REACTIONS (3)
  - Pain [Unknown]
  - Device infusion issue [Unknown]
  - Device alarm issue [Recovered/Resolved]

NARRATIVE: CASE EVENT DATE: 201701
